FAERS Safety Report 5502960-4 (Version None)
Quarter: 2007Q4

REPORT INFORMATION
  Report Type: 
  Country: None (occurrence: None)
  Receive Date: 20071031
  Receipt Date: 20071024
  Transmission Date: 20080405
  Serious: Yes (Other)
  Sender: FDA-Public Use
  Company Number: D0054703A

PATIENT
  Age: 66 Year
  Sex: Male

DRUGS (1)
  1. AVANDAMET [Suspect]
     Dosage: 502MG TWICE PER DAY
     Route: 048
     Dates: start: 20060101, end: 20070601

REACTIONS (7)
  - BLOOD GLUCOSE INCREASED [None]
  - CATARACT [None]
  - FLUID RETENTION [None]
  - HAEMOGLOBIN DECREASED [None]
  - JOINT SWELLING [None]
  - LYMPHADENOPATHY [None]
  - VISUAL DISTURBANCE [None]
